FAERS Safety Report 10186088 (Version 1)
Quarter: 2014Q2

REPORT INFORMATION
  Report Type: Spontaneous
  Country: US (occurrence: US)
  Receive Date: 20140521
  Receipt Date: 20140521
  Transmission Date: 20141212
  Serious: Yes (Hospitalization)
  Sender: FDA-Public Use
  Company Number: US-BAYER-2014-075198

PATIENT
  Age: 35 Year
  Sex: Female
  Weight: 173.5 kg

DRUGS (7)
  1. YASMIN [Suspect]
  2. CARVEDILOL [Concomitant]
     Dosage: 25 MG, BID
     Route: 048
  3. LASIX [Concomitant]
     Dosage: 40 MG, BID
     Route: 048
  4. ALDACTONE [SPIRONOLACTONE] [Concomitant]
     Dosage: 20 MG, ONCE DAILY
     Route: 048
  5. GUAIFENESIN [Concomitant]
     Dosage: 1200 MG, BID
     Route: 048
  6. CIPROFLOXACIN [Concomitant]
  7. DIFLUCAN [Concomitant]

REACTIONS (1)
  - Pulmonary embolism [None]
